FAERS Safety Report 7020923-7 (Version None)
Quarter: 2010Q3

REPORT INFORMATION
  Report Type: 
  Country: None (occurrence: None)
  Receive Date: 20100924
  Receipt Date: 20100916
  Transmission Date: 20110219
  Serious: Yes (Hospitalization)
  Sender: FDA-Public Use
  Company Number: 2010SP050038

PATIENT
  Age: 37 Year
  Sex: Female

DRUGS (2)
  1. NUVARING [Suspect]
     Indication: CONTRACEPTION
     Dosage: 1 DF; VAG
     Route: 067
     Dates: start: 20100712, end: 20100725
  2. TERBINAFINE HCL [Suspect]
     Indication: FUNGAL SKIN INFECTION
     Dosage: 250 MG;QD;PO
     Route: 048
     Dates: start: 20100716, end: 20100725

REACTIONS (1)
  - ACUTE GENERALISED EXANTHEMATOUS PUSTULOSIS [None]
